FAERS Safety Report 8367885-8 (Version None)
Quarter: 2012Q2

REPORT INFORMATION
  Report Type: 
  Country: None (occurrence: None)
  Receive Date: 20120517
  Receipt Date: 20120514
  Transmission Date: 20120825
  Serious: Yes (Hospitalization)
  Sender: FDA-Public Use
  Company Number: US-INCYTE CORPORATION-2012IN000802

PATIENT
  Sex: Female

DRUGS (9)
  1. COUMADIN [Concomitant]
  2. PROPRANOLOL [Concomitant]
  3. FOLIC ACID [Concomitant]
  4. PRILOSEC [Concomitant]
  5. QUININE SULFATE [Concomitant]
  6. BIOTIN [Concomitant]
  7. JAKAFI [Suspect]
     Indication: MYELOFIBROSIS
     Dosage: 5 MG, BID
     Route: 048
  8. LORAZEPAM [Concomitant]
  9. M.V.I. [Concomitant]

REACTIONS (2)
  - DEHYDRATION [None]
  - COLITIS [None]
